FAERS Safety Report 8423255-5 (Version None)
Quarter: 2012Q2

REPORT INFORMATION
  Report Type: 
  Country: None (occurrence: None)
  Receive Date: 20120608
  Receipt Date: 20120601
  Transmission Date: 20120825
  Serious: Yes (Hospitalization)
  Sender: FDA-Public Use
  Company Number: AU-B.I. PHARMACEUTICALS,INC./RIDGEFIELD-2012-AU-00359AU

PATIENT
  Sex: Male
  Weight: 175 kg

DRUGS (12)
  1. METFORMIN HCL [Concomitant]
     Dosage: 2000 MG
  2. SERETIDE MDI [Concomitant]
     Dosage: 1 FOUR TIMES A DAY
     Route: 055
  3. MAGNESIUM ASPARTATE [Concomitant]
  4. RULIDE [Concomitant]
     Dosage: 300 MG
  5. LIPITOR [Concomitant]
  6. PRADAXA [Suspect]
     Indication: CEREBROVASCULAR ACCIDENT PROPHYLAXIS
     Dosage: 300 MG
     Dates: end: 20110918
  7. CARTIA XT [Concomitant]
     Dosage: 100 MG
  8. SPIRIVA [Concomitant]
     Dosage: 36 MCG
     Route: 055
  9. LASIX [Concomitant]
     Dosage: 40 MG
  10. MONOPLUS [Concomitant]
     Dosage: 20 MG/12.5 MG 1 DAILY
  11. BICOR [Concomitant]
     Dosage: 2.5 MG
  12. PANTOPRAZOLE [Concomitant]
     Dosage: 80 MG

REACTIONS (5)
  - MELAENA [None]
  - GASTROINTESTINAL HAEMORRHAGE [None]
  - DYSPEPSIA [None]
  - RECTAL HAEMORRHAGE [None]
  - GASTROOESOPHAGEAL REFLUX DISEASE [None]
